FAERS Safety Report 9659594 (Version 2)
Quarter: 2013Q4

REPORT INFORMATION
  Report Type: Spontaneous
  Country: US (occurrence: None)
  Receive Date: 20131029
  Receipt Date: 20131213
  Transmission Date: 20140711
  Serious: Yes (Hospitalization)
  Sender: FDA-Public Use
  Company Number: AXC-2013-000564

PATIENT
  Age: 70 Year
  Sex: Female
  Weight: 53.5 kg

DRUGS (4)
  1. POTASSIUM CHLORIDE [Suspect]
     Indication: ELECTROLYTE SUBSTITUTION THERAPY
     Route: 048
     Dates: end: 20130506
  2. MAGNESIUM (MAGNESIUM) [Concomitant]
  3. NEURONTIN (GABAPENTIN) [Concomitant]
  4. VITAMIN D3 (COLECALCIFEROL) [Concomitant]

REACTIONS (2)
  - Renal failure [None]
  - Dehydration [None]
